FAERS Safety Report 9416177 (Version 1)
Quarter: 2013Q3

REPORT INFORMATION
  Report Type: Spontaneous
  Country: US (occurrence: None)
  Receive Date: 20130723
  Receipt Date: 20130723
  Transmission Date: 20140515
  Serious: Yes (Hospitalization)
  Sender: FDA-Public Use
  Company Number: None

PATIENT
  Sex: Female
  Weight: 81.7 kg

DRUGS (9)
  1. RIBAVIRIN [Suspect]
     Indication: HEPATITIS C
     Route: 048
     Dates: start: 20121115
  2. PEGASYS [Suspect]
     Indication: HEPATITIS C
     Dates: start: 20121115
  3. LANTUS [Concomitant]
  4. NOVOLOG [Concomitant]
  5. AMLODIPINE [Concomitant]
  6. SPIRONOLACTONE [Concomitant]
  7. LISINOPRIL [Concomitant]
  8. NORCO [Concomitant]
  9. ZOFRAN [Concomitant]

REACTIONS (8)
  - Asthenia [None]
  - Chest pain [None]
  - Nausea [None]
  - Vomiting [None]
  - Hyponatraemia [None]
  - Renal failure acute [None]
  - Dehydration [None]
  - Depression [None]
